FAERS Safety Report 11645242 (Version 1)
Quarter: 2015Q4

REPORT INFORMATION
  Report Type: Other
  Country: IT (occurrence: IT)
  Receive Date: 20151020
  Receipt Date: 20151020
  Transmission Date: 20160304
  Serious: Yes (Hospitalization)
  Sender: FDA-Public Use
  Company Number: IT-MYLANLABS-2015M1034846

PATIENT

DRUGS (6)
  1. LORAZEPAM. [Suspect]
     Active Substance: LORAZEPAM
     Indication: PRODUCT USED FOR UNKNOWN INDICATION
     Dosage: 50 MG, TOTAL
     Route: 048
     Dates: start: 20150401, end: 20150401
  2. EUTIROX [Concomitant]
     Active Substance: LEVOTHYROXINE SODIUM
     Indication: PRODUCT USED FOR UNKNOWN INDICATION
     Dosage: UNK
  3. ASPIRINA [Suspect]
     Active Substance: ASPIRIN
     Indication: PRODUCT USED FOR UNKNOWN INDICATION
     Dosage: 3 G, TOTAL
     Route: 048
     Dates: start: 20150401, end: 20150401
  4. TRIAZOLAM. [Suspect]
     Active Substance: TRIAZOLAM
     Dosage: 0.25 ?G, UNK
  5. LORAZEPAM. [Suspect]
     Active Substance: LORAZEPAM
     Dosage: 2.5 MG, UNK
  6. TRIAZOLAM. [Suspect]
     Active Substance: TRIAZOLAM
     Indication: PRODUCT USED FOR UNKNOWN INDICATION
     Dosage: 5 MG TOTAL
     Route: 048
     Dates: start: 20150401, end: 20150401

REACTIONS (5)
  - Slow speech [Recovered/Resolved]
  - Drug abuse [Recovered/Resolved]
  - Hypokinesia [Recovered/Resolved]
  - Intentional self-injury [Recovered/Resolved]
  - Intentional overdose [Unknown]

NARRATIVE: CASE EVENT DATE: 20150401
